FAERS Safety Report 13519324 (Version 15)
Quarter: 2021Q1

REPORT INFORMATION
  Report Type: Spontaneous
  Country: US (occurrence: US)
  Receive Date: 20170505
  Receipt Date: 20210204
  Transmission Date: 20210419
  Serious: No
  Sender: FDA-Public Use
  Company Number: US-PFIZER INC-2017199196

PATIENT
  Age: 58 Year
  Sex: Female
  Weight: 104.3 kg

DRUGS (17)
  1. VITAMIN D [Concomitant]
     Active Substance: VITAMIN D NOS
     Dosage: 4000 IU, DAILY
  2. HYDROCORTISONE. [Concomitant]
     Active Substance: HYDROCORTISONE
     Indication: ADRENAL INSUFFICIENCY
     Dosage: 5 MG, 1X/DAY
  3. T3 [Concomitant]
     Active Substance: LIOTHYRONINE SODIUM
     Indication: EMPTY SELLA SYNDROME
     Dosage: 100 MG
  4. GENOTROPIN MQ [Suspect]
     Active Substance: SOMATROPIN
     Indication: GROWTH HORMONE DEFICIENCY
     Dosage: 0.4 MG, DAILY
     Route: 058
     Dates: start: 2016
  5. TURMERIC [Concomitant]
     Active Substance: HERBALS\TURMERIC
     Dosage: 500 MG, 2X/DAY
  6. GENOTROPIN MQ [Suspect]
     Active Substance: SOMATROPIN
     Indication: HYPOPITUITARISM
     Dosage: UNK
  7. GENOTROPIN MQ [Suspect]
     Active Substance: SOMATROPIN
     Dosage: UNK
  8. GENOTROPIN MQ [Suspect]
     Active Substance: SOMATROPIN
     Dosage: 3 DOSES (6 DAYS)
  9. T4 [Concomitant]
     Active Substance: LEVOTHYROXINE
     Indication: EMPTY SELLA SYNDROME
     Dosage: 100 MG
  10. HYDROCORTISONE. [Concomitant]
     Active Substance: HYDROCORTISONE
     Indication: EMPTY SELLA SYNDROME
     Dosage: UNK UNK, 2X/DAY (IN THE MORNING AND AT NIGHT)
  11. GENOTROPIN MQ [Suspect]
     Active Substance: SOMATROPIN
     Indication: EMPTY SELLA SYNDROME
     Dosage: UNK
     Dates: start: 201605
  12. GENOTROPIN MQ [Suspect]
     Active Substance: SOMATROPIN
     Dosage: 0.4 MG, (5 DAYS A WEEK)
     Dates: start: 201607
  13. GENOTROPIN MQ [Suspect]
     Active Substance: SOMATROPIN
     Dosage: 0.4 MG (4 DAYS A WEEK)
  14. VITAMIN B12 [Concomitant]
     Active Substance: CYANOCOBALAMIN
     Dosage: 5000 IU, DAILY
  15. GENOTROPIN MQ [Suspect]
     Active Substance: SOMATROPIN
     Dosage: 0.4 MG, DAILY
  16. GENOTROPIN MQ [Suspect]
     Active Substance: SOMATROPIN
     Dosage: 0.4 MG (3.5 DAYS A WEEK)
     Dates: start: 2016
  17. SYNTHROID [Concomitant]
     Active Substance: LEVOTHYROXINE SODIUM
     Dosage: 88 UG, 1X/DAY(AT BEDTIME)/AN HOUR BEFORE MEALS

REACTIONS (17)
  - Wrong technique in device usage process [Unknown]
  - Intentional product use issue [Unknown]
  - Dizziness [Unknown]
  - Poor quality product administered [Unknown]
  - Device leakage [Unknown]
  - Malaise [Unknown]
  - Blood immunoglobulin G increased [Unknown]
  - Anger [Unknown]
  - Product dose omission issue [Unknown]
  - Blood sodium increased [Unknown]
  - Off label use [Unknown]
  - Temperature intolerance [Unknown]
  - Expired device used [Unknown]
  - Hypotension [Unknown]
  - Withdrawal syndrome [Unknown]
  - Device issue [Unknown]
  - Disorientation [Unknown]

NARRATIVE: CASE EVENT DATE: 20171112
